FAERS Safety Report 18546375 (Version 5)
Quarter: 2021Q1

REPORT INFORMATION
  Report Type: Spontaneous
  Country: JP (occurrence: JP)
  Receive Date: 20201125
  Receipt Date: 20210114
  Transmission Date: 20210419
  Serious: Yes (Life-Threatening, Disabling, Other)
  Sender: FDA-Public Use
  Company Number: JP-ALLERGAN-2045907US

PATIENT

DRUGS (8)
  1. BOTOX [Suspect]
     Active Substance: ONABOTULINUMTOXINA
     Dosage: 5 U/0.1 ML
     Route: 030
     Dates: start: 20190222, end: 20190222
  2. BOTOX [Suspect]
     Active Substance: ONABOTULINUMTOXINA
     Indication: MUSCLE SPASMS
     Dosage: 95 UNITS, SINGLE
     Route: 030
     Dates: start: 20200824, end: 20200824
  3. BOTOX [Suspect]
     Active Substance: ONABOTULINUMTOXINA
     Dosage: 5 U/0.1 ML
     Route: 030
     Dates: start: 20170720, end: 20170720
  4. BOTOX [Suspect]
     Active Substance: ONABOTULINUMTOXINA
     Dosage: 70 UNITS
     Route: 030
     Dates: start: 20190521, end: 20190521
  5. MAGMITT [Concomitant]
     Active Substance: MAGNESIUM OXIDE
     Indication: CONSTIPATION
     Dosage: 0.3 G, QD
     Route: 048
     Dates: start: 20161120
  6. BIOFERMIN [Concomitant]
     Active Substance: DIETARY SUPPLEMENT\PROBIOTICS
     Indication: GASTROINTESTINAL DISORDER
     Dosage: 0.5 G, BID
     Route: 048
     Dates: start: 20161120
  7. EPINASTINE HYDROCHLORIDE DS FOR PEDIATRIC [Concomitant]
     Indication: DERMATITIS
     Dosage: 0.4 G, QD
     Route: 048
     Dates: start: 20161120
  8. BOTOX [Suspect]
     Active Substance: ONABOTULINUMTOXINA
     Indication: TORTICOLLIS
     Dosage: UNK
     Route: 030
     Dates: start: 20200427, end: 20200427

REACTIONS (8)
  - Choking [Recovering/Resolving]
  - Musculoskeletal stiffness [Recovered/Resolved]
  - Joint hyperextension [Recovered/Resolved]
  - Oesophageal disorder [Not Recovered/Not Resolved]
  - Upper airway obstruction [Recovered/Resolved]
  - Torticollis [Recovering/Resolving]
  - Scoliosis [Not Recovered/Not Resolved]
  - Off label use [Unknown]

NARRATIVE: CASE EVENT DATE: 20170720
